FAERS Safety Report 6149358-6 (Version None)
Quarter: 2009Q2

REPORT INFORMATION
  Report Type: 
  Country: None (occurrence: None)
  Receive Date: 20090406
  Receipt Date: 20090406
  Transmission Date: 20091009
  Serious: Yes (Life-Threatening, Disabling, Other)
  Sender: FDA-Public Use
  Company Number: None

PATIENT
  Age: 21 Year
  Sex: Female
  Weight: 87.0906 kg

DRUGS (1)
  1. ERRIN [Suspect]
     Indication: CONTRACEPTION
     Dosage: 1 PER DAY PO
     Route: 048
     Dates: start: 20090104, end: 20090217

REACTIONS (7)
  - ABDOMINAL PAIN [None]
  - ALOPECIA [None]
  - HEADACHE [None]
  - NAUSEA [None]
  - PRESYNCOPE [None]
  - TYPE 1 DIABETES MELLITUS [None]
  - WEIGHT DECREASED [None]
